FAERS Safety Report 5856800-4 (Version None)
Quarter: 2008Q3

REPORT INFORMATION
  Report Type: 
  Country: None (occurrence: None)
  Receive Date: 20080825
  Receipt Date: 20080821
  Transmission Date: 20090109
  Serious: Yes (Other)
  Sender: FDA-Public Use
  Company Number: US-SANOFI-SYNTHELABO-A03200802900

PATIENT
  Sex: Male
  Weight: 69.9 kg

DRUGS (4)
  1. PALONOSETRON [Concomitant]
     Indication: DRUG USE FOR UNKNOWN INDICATION
     Dosage: UNK
     Route: 065
     Dates: start: 20080701
  2. ELOXATIN [Suspect]
     Indication: RECTAL CANCER
     Dosage: 100 MG/M2 EVERY 21 DAYS (182 MG)
     Route: 042
     Dates: start: 20080701, end: 20080701
  3. XELODA [Suspect]
     Indication: COLORECTAL CANCER
     Dosage: 2000 MG/M2 DAILY FOR 1-14 DAYS
     Route: 048
     Dates: start: 20080701, end: 20080701
  4. DEXAMETHASONE TAB [Concomitant]
     Indication: DRUG USE FOR UNKNOWN INDICATION
     Dosage: UNK
     Route: 065
     Dates: start: 20080701

REACTIONS (5)
  - BLOOD BILIRUBIN INCREASED [None]
  - CHOLECYSTITIS [None]
  - CHOLELITHIASIS [None]
  - JAUNDICE CHOLESTATIC [None]
  - LIVER FUNCTION TEST ABNORMAL [None]
